FAERS Safety Report 14905729 (Version 1)
Quarter: 2018Q2

REPORT INFORMATION
  Report Type: Spontaneous
  Country: US (occurrence: US)
  Receive Date: 20180517
  Receipt Date: 20180517
  Transmission Date: 20180711
  Serious: No
  Sender: FDA-Public Use
  Company Number: US-SA-2018SA008952

PATIENT
  Age: 63 Year
  Sex: Female
  Weight: 68.95 kg

DRUGS (5)
  1. PERCOCET [Concomitant]
     Active Substance: ACETAMINOPHEN\OXYCODONE HYDROCHLORIDE
     Indication: TRIGEMINAL NEURALGIA
     Dosage: DOSE: 10 M
     Route: 065
  2. LANTUS SOLOSTAR [Suspect]
     Active Substance: INSULIN GLARGINE
     Indication: TYPE 2 DIABETES MELLITUS
     Dosage: DOSE- 14UNITS EVERY NIGHT DOSE:14 UNIT(S)
     Route: 051
     Dates: start: 2017, end: 20180104
  3. SOLOSTAR [Suspect]
     Active Substance: DEVICE
     Indication: TYPE 2 DIABETES MELLITUS
     Dates: start: 2017, end: 20180104
  4. LANTUS SOLOSTAR [Suspect]
     Active Substance: INSULIN GLARGINE
     Indication: TYPE 2 DIABETES MELLITUS
     Dosage: DOSE- 14UNITS EVERY NIGHT DOSE:14 UNIT(S)
     Route: 051
     Dates: start: 2017, end: 20180104
  5. SOLOSTAR [Suspect]
     Active Substance: DEVICE
     Indication: TYPE 2 DIABETES MELLITUS
     Dates: start: 2017, end: 20180104

REACTIONS (7)
  - Nerve injury [Recovering/Resolving]
  - Injection site pain [Recovering/Resolving]
  - Eczema [Recovering/Resolving]
  - Injection site haemorrhage [Recovering/Resolving]
  - Device issue [Unknown]
  - Injection site bruising [Recovering/Resolving]
  - Injection site extravasation [Recovering/Resolving]

NARRATIVE: CASE EVENT DATE: 2017
